FAERS Safety Report 23994082 (Version 1)
Quarter: 2024Q2

REPORT INFORMATION
  Report Type: Spontaneous
  Country: CN (occurrence: None)
  Receive Date: 20240620
  Receipt Date: 20240620
  Transmission Date: 20240716
  Serious: Yes (Hospitalization)
  Sender: FDA-Public Use
  Company Number: 2024A139517

PATIENT
  Age: 4048 Week
  Sex: Female
  Weight: 51 kg

DRUGS (2)
  1. OSIMERTINIB MESYLATE [Suspect]
     Active Substance: OSIMERTINIB MESYLATE
     Indication: Lung neoplasm malignant
     Route: 048
     Dates: start: 20240510
  2. OSIMERTINIB MESYLATE [Suspect]
     Active Substance: OSIMERTINIB MESYLATE
     Indication: Metastases to central nervous system
     Route: 048
     Dates: start: 20240510

REACTIONS (2)
  - Mucosal ulceration [Recovering/Resolving]
  - Lip ulceration [Recovering/Resolving]

NARRATIVE: CASE EVENT DATE: 20240524
